FAERS Safety Report 15735644 (Version 1)
Quarter: 2018Q4

REPORT INFORMATION
  Report Type: Spontaneous
  Country: JP (occurrence: JP)
  Receive Date: 20181218
  Receipt Date: 20181218
  Transmission Date: 20190205
  Serious: Yes (Other)
  Sender: FDA-Public Use
  Company Number: JP-PFIZER INC-2018512832

PATIENT
  Age: 64 Year
  Sex: Male

DRUGS (1)
  1. HYDROCORTISONE. [Suspect]
     Active Substance: HYDROCORTISONE
     Indication: ADRENAL INSUFFICIENCY
     Dosage: 20 MG, UNK
     Route: 048

REACTIONS (1)
  - Disseminated tuberculosis [Unknown]
